FAERS Safety Report 11269895 (Version 1)
Quarter: 2015Q3

REPORT INFORMATION
  Report Type: Spontaneous
  Country: US (occurrence: US)
  Receive Date: 20150714
  Receipt Date: 20150714
  Transmission Date: 20151125
  Serious: No
  Sender: FDA-Public Use
  Company Number: US-BIOGENIDEC-2015BI095715

PATIENT
  Age: 69 Year
  Sex: Female

DRUGS (4)
  1. TECFIDERA [Suspect]
     Active Substance: DIMETHYL FUMARATE
     Indication: MULTIPLE SCLEROSIS
     Route: 048
     Dates: start: 20130617
  2. PROBIOTIC COMPLEX ACIDOPHILUS [Concomitant]
  3. ASPIRIN LOW DOSE [Concomitant]
     Active Substance: ASPIRIN
  4. ARMOUR THYROID [Concomitant]
     Active Substance: THYROID, PORCINE\THYROID, UNSPECIFIED

REACTIONS (1)
  - Blood count abnormal [Not Recovered/Not Resolved]
